FAERS Safety Report 9379951 (Version 1)
Quarter: 2013Q3

REPORT INFORMATION
  Report Type: Report from Study
  Country: US (occurrence: US)
  Receive Date: 20130702
  Receipt Date: 20130702
  Transmission Date: 20140515
  Serious: Yes (Other)
  Sender: FDA-Public Use
  Company Number: PHEH2013US006913

PATIENT
  Sex: Female
  Weight: 56.69 kg

DRUGS (5)
  1. GILENYA [Suspect]
     Indication: MULTIPLE SCLEROSIS
     Route: 048
  2. LORAZEPAM [Concomitant]
  3. MULTI-VIT [Concomitant]
  4. AVONEX [Concomitant]
  5. AMPYRA [Concomitant]

REACTIONS (1)
  - Blood pressure decreased [Recovered/Resolved]
